FAERS Safety Report 6741103-6 (Version None)
Quarter: 2010Q2

REPORT INFORMATION
  Report Type: 
  Country: None (occurrence: None)
  Receive Date: 20100526
  Receipt Date: 20100519
  Transmission Date: 20101027
  Serious: Yes (Hospitalization, Other)
  Sender: FDA-Public Use
  Company Number: PHHO2010TW05754

PATIENT
  Sex: Male
  Weight: 77.5 kg

DRUGS (13)
  1. TASIGNA [Suspect]
     Indication: GASTROINTESTINAL STROMAL TUMOUR
     Dosage: 400 MG, BID
     Route: 048
     Dates: start: 20090622, end: 20090626
  2. TASIGNA [Suspect]
     Dosage: 400 MG, BID
     Route: 048
     Dates: start: 20091109, end: 20100416
  3. ATORVASTATIN [Concomitant]
     Indication: HYPERLIPIDAEMIA
  4. ASPIRIN [Concomitant]
     Indication: CORONARY ARTERY DISEASE
  5. CLOPIDOGREL [Concomitant]
     Indication: CORONARY ARTERY DISEASE
  6. CARVEDILOL [Concomitant]
     Indication: CORONARY ARTERY DISEASE
  7. ENALAPRIL [Concomitant]
     Indication: CORONARY ARTERY DISEASE
  8. ISOSORBIDE DINITRATE [Concomitant]
     Indication: CORONARY ARTERY DISEASE
  9. ENOXAPARIN SODIUM [Concomitant]
     Indication: CORONARY ARTERY DISEASE
  10. FAMOTIDINE [Concomitant]
     Indication: DUODENAL ULCER
  11. TAMSULOSIN D [Concomitant]
     Indication: BENIGN PROSTATIC HYPERPLASIA
     Dosage: UNK
     Dates: start: 20090519, end: 20100415
  12. ISOSORBIDE MONONITRATE [Concomitant]
     Indication: CORONARY ARTERY DISEASE
  13. ACETAMINOPHEN [Concomitant]
     Indication: HEADACHE

REACTIONS (14)
  - ACUTE MYOCARDIAL INFARCTION [None]
  - ASTHENIA [None]
  - ATRIAL FIBRILLATION [None]
  - CHEST DISCOMFORT [None]
  - CHEST PAIN [None]
  - COLD SWEAT [None]
  - DIASTOLIC DYSFUNCTION [None]
  - DYSPNOEA [None]
  - FATIGUE [None]
  - NAUSEA [None]
  - PAIN [None]
  - PERICARDIAL EFFUSION [None]
  - PULMONARY HYPERTENSION [None]
  - TRICUSPID VALVE INCOMPETENCE [None]
